FAERS Safety Report 25538878 (Version 2)
Quarter: 2025Q3

REPORT INFORMATION
  Report Type: Spontaneous
  Country: PS (occurrence: PS)
  Receive Date: 20250710
  Receipt Date: 20250827
  Transmission Date: 20251021
  Serious: Yes (Death, Hospitalization, Other)
  Sender: SANOFI AVENTIS
  Company Number: PS-SA-2025SA178623

PATIENT
  Age: 3 Year
  Sex: Female

DRUGS (1)
  1. MYOZYME [Suspect]
     Active Substance: ALGLUCOSIDASE ALFA
     Indication: Glycogen storage disease type II
     Route: 065

REACTIONS (2)
  - Pneumonia [Fatal]
  - Respiratory distress [Fatal]
